FAERS Safety Report 17315253 (Version 2)
Quarter: 2020Q3

REPORT INFORMATION
  Report Type: Spontaneous
  Country: IN (occurrence: IN)
  Receive Date: 20200124
  Receipt Date: 20200814
  Transmission Date: 20201102
  Serious: Yes (Death)
  Sender: FDA-Public Use
  Company Number: IN-ROCHE-2531006

PATIENT
  Age: 46 Year
  Sex: Female
  Weight: 45.1 kg

DRUGS (9)
  1. TRASTUZUMAB EMTANSINE [Suspect]
     Active Substance: ADO-TRASTUZUMAB EMTANSINE
     Indication: BREAST CANCER METASTATIC
     Dosage: FOR DURATION OF 90 MINUTES (21 DAYS CYCLE)
     Route: 042
     Dates: start: 20191223, end: 20191223
  2. PARACETAMOL [Concomitant]
     Active Substance: ACETAMINOPHEN
     Indication: PYREXIA
     Route: 048
     Dates: start: 20191224
  3. PARACETAMOL [Concomitant]
     Active Substance: ACETAMINOPHEN
     Indication: PAIN
  4. GRANISETRON [Concomitant]
     Active Substance: GRANISETRON
     Indication: GASTRITIS PROPHYLAXIS
     Route: 048
     Dates: start: 20191224, end: 20191226
  5. PANTOPRAZOLE [Concomitant]
     Active Substance: PANTOPRAZOLE
     Indication: GASTRITIS PROPHYLAXIS
     Route: 048
     Dates: start: 20191224
  6. METOCLOPRAMIDE. [Concomitant]
     Active Substance: METOCLOPRAMIDE
     Indication: PROPHYLAXIS OF NAUSEA AND VOMITING
     Route: 048
     Dates: start: 20191224, end: 20191226
  7. METOCLOPRAMIDE. [Concomitant]
     Active Substance: METOCLOPRAMIDE
     Indication: PROPHYLAXIS OF NAUSEA AND VOMITING
  8. ALPRAZOLAM. [Concomitant]
     Active Substance: ALPRAZOLAM
     Indication: ANXIETY
     Route: 048
     Dates: start: 20191224, end: 20191226
  9. ALUMINIUM HYDROXIDE [Concomitant]
     Active Substance: ALUMINUM HYDROXIDE
     Indication: GASTROOESOPHAGEAL REFLUX DISEASE
     Route: 048
     Dates: start: 20191224

REACTIONS (1)
  - Dyspnoea [Fatal]

NARRATIVE: CASE EVENT DATE: 20191226
